FAERS Safety Report 23559379 (Version 2)
Quarter: 2024Q2

REPORT INFORMATION
  Report Type: Report from Study
  Country: US (occurrence: US)
  Receive Date: 20240223
  Receipt Date: 20240522
  Transmission Date: 20240716
  Serious: Yes (Death)
  Sender: FDA-Public Use
  Company Number: US-BAYER-2024A028810

PATIENT
  Sex: Female

DRUGS (1)
  1. STIVARGA [Suspect]
     Active Substance: REGORAFENIB\REGORAFENIB MONOHYDRATE
     Dosage: UNK
     Dates: end: 202308

REACTIONS (4)
  - Malignant neoplasm progression [Fatal]
  - Fatigue [None]
  - Asthenia [None]
  - Decreased appetite [None]
